FAERS Safety Report 4350641-5 (Version None)
Quarter: 2004Q2

REPORT INFORMATION
  Report Type: 
  Country: None (occurrence: None)
  Receive Date: 20040427
  Receipt Date: 20040416
  Transmission Date: 20050107
  Serious: Yes (Life-Threatening, Hospitalization)
  Sender: FDA-Public Use
  Company Number: 2004210050IT

PATIENT
  Age: 68 Year
  Sex: Male

DRUGS (2)
  1. FRAGMIN [Suspect]
     Indication: ATRIAL FIBRILLATION
     Dosage: 15000 U, DAILY, SUBCUTANEOUS
     Route: 058
     Dates: start: 20031231, end: 20040105
  2. CORTICOSTEROID NOS [Concomitant]

REACTIONS (2)
  - HAEMATOMA [None]
  - RETROPERITONEAL HAEMORRHAGE [None]
